FAERS Safety Report 6727032-2 (Version None)
Quarter: 2010Q2

REPORT INFORMATION
  Report Type: 
  Country: None (occurrence: None)
  Receive Date: 20100517
  Receipt Date: 20100505
  Transmission Date: 20101027
  Serious: Yes (Disabling, Other)
  Sender: FDA-Public Use
  Company Number: US-BAYER-201014829NA

PATIENT
  Age: 26 Year
  Sex: Female

DRUGS (3)
  1. MIRENA [Suspect]
     Indication: CONTRACEPTION
     Dosage: FREQUENCY: CONTINUOUS
     Route: 015
     Dates: start: 20060623, end: 20060718
  2. GRIFULVIN V [Concomitant]
     Dosage: UNIT DOSE: 500 MG
  3. PONSTEL [Concomitant]

REACTIONS (10)
  - ABDOMINAL PAIN LOWER [None]
  - ABDOMINAL PAIN UPPER [None]
  - MIGRAINE [None]
  - NAUSEA [None]
  - PRURITUS [None]
  - RASH GENERALISED [None]
  - TRANSFUSION [None]
  - UNEVALUABLE EVENT [None]
  - URTICARIA [None]
  - VAGINAL HAEMORRHAGE [None]
